FAERS Safety Report 16227558 (Version 2)
Quarter: 2019Q2

REPORT INFORMATION
  Report Type: Spontaneous
  Country: IT (occurrence: IT)
  Receive Date: 20190423
  Receipt Date: 20190502
  Transmission Date: 20190711
  Serious: Yes (Other)
  Sender: FDA-Public Use
  Company Number: IT-PFIZER INC-2019163396

PATIENT
  Age: 58 Year
  Sex: Female
  Weight: 80 kg

DRUGS (3)
  1. HYDROCHLOROTHIAZIDE/RAMIPRIL [Concomitant]
     Dosage: 5 MG, UNK
  2. TORVAST [Concomitant]
     Active Substance: ATORVASTATIN
     Dosage: 10 MG, UNK
     Route: 048
  3. XELJANZ [Suspect]
     Active Substance: TOFACITINIB CITRATE
     Indication: RHEUMATOID ARTHRITIS
     Dosage: 10 MG, DAILY
     Dates: start: 20190129, end: 20190409

REACTIONS (1)
  - Thrombophlebitis superficial [Recovered/Resolved]

NARRATIVE: CASE EVENT DATE: 20190315
